FAERS Safety Report 25358003 (Version 3)
Quarter: 2025Q2

REPORT INFORMATION
  Report Type: Spontaneous
  Country: US (occurrence: US)
  Receive Date: 20250526
  Receipt Date: 20250628
  Transmission Date: 20250716
  Serious: No
  Sender: SANOFI AVENTIS
  Company Number: US-SA-2025SA149634

PATIENT
  Sex: Female

DRUGS (8)
  1. LANTUS [Suspect]
     Active Substance: INSULIN GLARGINE
     Indication: Diabetes mellitus
     Dosage: 30 IU, HS
     Route: 058
     Dates: start: 2019
  2. CYCLOBENZAPRINE [Concomitant]
     Active Substance: CYCLOBENZAPRINE
  3. PANTOPRAZOLE [Concomitant]
     Active Substance: PANTOPRAZOLE
  4. LASIX [Concomitant]
     Active Substance: FUROSEMIDE
  5. ONDANSETRON [Concomitant]
     Active Substance: ONDANSETRON
  6. PREDNISONE [Concomitant]
     Active Substance: PREDNISONE
  7. ATORVASTATIN [Concomitant]
     Active Substance: ATORVASTATIN
  8. ALBUTEROL [Concomitant]
     Active Substance: ALBUTEROL

REACTIONS (1)
  - Blood glucose increased [Unknown]

NARRATIVE: CASE EVENT DATE: 20250401
